FAERS Safety Report 8772323 (Version 2)
Quarter: 2012Q4

REPORT INFORMATION
  Report Type: 
  Country: US (occurrence: US)
  Receive Date: 20120906
  Receipt Date: 20120912
  Transmission Date: 20130627
  Serious: No
  Sender: FDA-Public Use
  Company Number: US-BIOGENIDEC-2012BI035195

PATIENT
  Age: 55 Year
  Sex: Male

DRUGS (4)
  1. AVONEX [Suspect]
     Indication: MULTIPLE SCLEROSIS
     Route: 030
     Dates: start: 20051024, end: 20070409
  2. AVONEX [Suspect]
     Indication: MULTIPLE SCLEROSIS
     Route: 030
     Dates: start: 20120424, end: 201208
  3. AVONEX [Suspect]
     Indication: MULTIPLE SCLEROSIS
     Route: 030
     Dates: start: 20120829
  4. MEDICATION (NOS) [Concomitant]
     Indication: PREMEDICATION

REACTIONS (4)
  - Influenza like illness [Unknown]
  - Back pain [Unknown]
  - Dyskinesia [Recovered/Resolved]
  - Tremor [Recovered/Resolved]
